FAERS Safety Report 4558685-5 (Version None)
Quarter: 2005Q1

REPORT INFORMATION
  Report Type: 
  Country: None (occurrence: None)
  Receive Date: 20050119
  Receipt Date: 20050107
  Transmission Date: 20050727
  Serious: Yes (Other)
  Sender: FDA-Public Use
  Company Number: 2005004489

PATIENT
  Age: 75 Year
  Sex: Female

DRUGS (10)
  1. LIPITOR [Suspect]
     Indication: CARDIAC FAILURE CONGESTIVE
     Dosage: 10 MG (10 MG, 1 IN 1 D), ORAL
     Route: 048
     Dates: start: 20030517, end: 20040723
  2. CLOPIDOGREL BISULFATE [Suspect]
     Indication: VISION BLURRED
     Dosage: 75 MG (75 MG, 1 IN 1 D), ORAL
     Route: 048
     Dates: start: 20040501, end: 20040601
  3. IBUPROFEN [Suspect]
     Indication: VISION BLURRED
     Dosage: 1600 MG (800 MG, 2 IN 1 D), ORAL
     Route: 048
     Dates: start: 20040501, end: 20040501
  4. LISINOPRIL [Concomitant]
  5. METOPROLOL SUCCINATE [Concomitant]
  6. PANTOPRAZOLE (PANTOPRAZOLE) [Concomitant]
  7. LORAZEPAM [Concomitant]
  8. DYAZIDE (HYDROCHLOROTHIAZIDE, TIRAMTERENE) [Concomitant]
  9. ASPIRIN [Concomitant]
  10. PROPACET (DEXTROPROPOXYPHENE NAPSILATE) [Concomitant]

REACTIONS (8)
  - ABASIA [None]
  - ASTHENIA [None]
  - EYE HAEMORRHAGE [None]
  - FATIGUE [None]
  - RED BLOOD CELL SEDIMENTATION RATE INCREASED [None]
  - TEMPORAL ARTERITIS [None]
  - VISION BLURRED [None]
  - WEIGHT DECREASED [None]
